FAERS Safety Report 5894926-X (Version None)
Quarter: 2008Q3

REPORT INFORMATION
  Report Type: 
  Country: None (occurrence: None)
  Receive Date: 20080924
  Receipt Date: 20080916
  Transmission Date: 20090109
  Serious: Yes (Other)
  Sender: FDA-Public Use
  Company Number: PHHY2008ES21550

PATIENT
  Age: 59 Year
  Sex: Female

DRUGS (2)
  1. EXFORGE [Suspect]
     Indication: HYPERTENSION
     Dosage: 5
     Route: 048
     Dates: start: 20080520
  2. EXFORGE [Suspect]
     Dosage: 10
     Route: 048

REACTIONS (2)
  - CELLULITIS [None]
  - OEDEMA PERIPHERAL [None]
